FAERS Safety Report 14681793 (Version 3)
Quarter: 2019Q2

REPORT INFORMATION
  Report Type: Spontaneous
  Country: US (occurrence: US)
  Receive Date: 20180326
  Receipt Date: 20190610
  Transmission Date: 20190711
  Serious: Yes (Hospitalization, Other)
  Sender: FDA-Public Use
  Company Number: US-PFIZER INC-2018119954

PATIENT
  Age: 68 Year
  Sex: Female
  Weight: 58.97 kg

DRUGS (8)
  1. VFEND [Suspect]
     Active Substance: VORICONAZOLE
     Dosage: UNK
  2. VALCYTE [Concomitant]
     Active Substance: VALGANCICLOVIR HYDROCHLORIDE
     Indication: ANTIVIRAL TREATMENT
     Dosage: 450 MG, 2X/DAY
     Dates: start: 201705, end: 201801
  3. VFEND [Suspect]
     Active Substance: VORICONAZOLE
     Indication: ASPERGILLUS INFECTION
     Dosage: 200 MG, 2X/DAY
     Route: 048
  4. NYSTATIN. [Concomitant]
     Active Substance: NYSTATIN
     Dosage: 100,000 USE PER ML SUSPENSION I TAKE 5 ML TWICE A DAY BY MOUTH
     Route: 048
     Dates: start: 201705, end: 201902
  5. PREDNISONE. [Concomitant]
     Active Substance: PREDNISONE
     Dosage: UNK
     Dates: start: 201705
  6. SULFAMETHOXAZOLE [Concomitant]
     Active Substance: SULFAMETHOXAZOLE
     Dosage: UNK
     Dates: start: 201705
  7. VFEND [Suspect]
     Active Substance: VORICONAZOLE
     Indication: LUNG TRANSPLANT
     Dosage: 200 MG, 2X/DAY
     Dates: start: 201705, end: 201812
  8. SEPTRA [Concomitant]
     Active Substance: SULFAMETHOXAZOLE\TRIMETHOPRIM
     Indication: ANTIBIOTIC THERAPY
     Dosage: [SULFAMETHOXAZOLE 400MG]/ [TRIMETHOPRIM 80MG] ONE TABLET MONDAY, WEDNESDAY AND FRIDAY
     Dates: start: 201705

REACTIONS (4)
  - White blood cell count decreased [Recovered/Resolved]
  - Lung transplant rejection [Recovered/Resolved]
  - Condition aggravated [Recovered/Resolved]
  - Drug ineffective [Recovered/Resolved]

NARRATIVE: CASE EVENT DATE: 201712
